FAERS Safety Report 11471104 (Version 2)
Quarter: 2015Q3

REPORT INFORMATION
  Report Type: Spontaneous
  Country: US (occurrence: US)
  Receive Date: 20150903
  Receipt Date: 20150903
  Transmission Date: 20151125
  Serious: Yes (Other)
  Sender: FDA-Public Use
  Company Number: US-ELI_LILLY_AND_COMPANY-US201201004712

PATIENT
  Age: 16 Year
  Sex: Female

DRUGS (3)
  1. INTUNIV [Concomitant]
     Active Substance: GUANFACINE HYDROCHLORIDE
     Dosage: 1 MG, UNK
  2. CYMBALTA [Suspect]
     Active Substance: DULOXETINE HYDROCHLORIDE
     Dosage: 30 MG, QD
     Dates: start: 201112, end: 20120106
  3. CYMBALTA [Suspect]
     Active Substance: DULOXETINE HYDROCHLORIDE
     Indication: DEPRESSION
     Dosage: 60 MG, QD
     Dates: start: 201001, end: 201112

REACTIONS (12)
  - Night sweats [Unknown]
  - Mental disorder [Unknown]
  - Constipation [Unknown]
  - Anxiety [Unknown]
  - Confusional state [Unknown]
  - Feeling of body temperature change [Unknown]
  - Crying [Unknown]
  - Pain [Unknown]
  - Suicidal ideation [Unknown]
  - Amnesia [Unknown]
  - Off label use [Recovered/Resolved]
  - Headache [Unknown]

NARRATIVE: CASE EVENT DATE: 201001
